FAERS Safety Report 26166411 (Version 1)
Quarter: 2025Q4

REPORT INFORMATION
  Report Type: Spontaneous
  Country: US (occurrence: US)
  Receive Date: 20251217
  Receipt Date: 20251217
  Transmission Date: 20260118
  Serious: No
  Sender: SANOFI AVENTIS
  Company Number: US-SA-2025SA374400

PATIENT
  Sex: Female
  Weight: 76.82 kg

DRUGS (6)
  1. DUPIXENT [Suspect]
     Active Substance: DUPILUMAB
     Indication: Dermatitis atopic
     Dosage: 300 MG, QOW
     Route: 058
  2. KETOCONAZOLE [Concomitant]
     Active Substance: KETOCONAZOLE
  3. TACROLIMUS [Concomitant]
     Active Substance: TACROLIMUS
  4. TIMOLOL MALEATE [Concomitant]
     Active Substance: TIMOLOL MALEATE
  5. TRIAMCINOLONE ACETONIDE [Concomitant]
     Active Substance: TRIAMCINOLONE ACETONIDE
  6. BIMATOPROST [Concomitant]
     Active Substance: BIMATOPROST

REACTIONS (3)
  - Dermatitis atopic [Not Recovered/Not Resolved]
  - Skin irritation [Not Recovered/Not Resolved]
  - Drug resistance [Unknown]
